FAERS Safety Report 8137880-2 (Version None)
Quarter: 2012Q1

REPORT INFORMATION
  Report Type: 
  Country: None (occurrence: None)
  Receive Date: 20120215
  Receipt Date: 20120210
  Transmission Date: 20120608
  Serious: Yes (Hospitalization)
  Sender: FDA-Public Use
  Company Number: US-BAYER-2011-035569

PATIENT
  Age: 25 Year
  Sex: Female
  Weight: 60.771 kg

DRUGS (6)
  1. YAZ [Suspect]
     Indication: CONTRACEPTION
     Dosage: UNK
     Dates: start: 20061201, end: 20090401
  2. CLARITIN-D [Concomitant]
     Route: 048
  3. YAZ [Suspect]
  4. CALCIUM [Concomitant]
     Route: 048
  5. ASCORBIC ACID [Concomitant]
     Route: 048
  6. MULTI-VITAMIN [Concomitant]
     Route: 048

REACTIONS (5)
  - EMOTIONAL DISTRESS [None]
  - PULMONARY EMBOLISM [None]
  - MENTAL DISORDER [None]
  - PAIN [None]
  - INJURY [None]
